FAERS Safety Report 17363674 (Version 1)
Quarter: 2020Q1

REPORT INFORMATION
  Report Type: Spontaneous
  Country: GB (occurrence: GB)
  Receive Date: 20200203
  Receipt Date: 20200203
  Transmission Date: 20200409
  Serious: No
  Sender: FDA-Public Use
  Company Number: GB-MARKSANS PHARMA LIMITED-2079768

PATIENT
  Sex: Female

DRUGS (1)
  1. IBUPROFEN MOELCULE FROM UK MARKET [Suspect]
     Active Substance: IBUPROFEN
     Indication: ARTHRALGIA
     Route: 048

REACTIONS (3)
  - Abdominal pain [None]
  - Diarrhoea [None]
  - Skin irritation [None]
